FAERS Safety Report 6044677-6 (Version None)
Quarter: 2009Q1

REPORT INFORMATION
  Report Type: 
  Country: None (occurrence: None)
  Receive Date: 20090120
  Receipt Date: 20090108
  Transmission Date: 20090719
  Serious: Yes (Other)
  Sender: FDA-Public Use
  Company Number: US-PFIZER INC-2008086769

PATIENT
  Sex: Female
  Weight: 52.272 kg

DRUGS (6)
  1. CHANTIX [Suspect]
     Indication: SMOKING CESSATION THERAPY
     Dosage: UNK
     Dates: start: 20080719
  2. PERCOCET [Concomitant]
     Dosage: UNK
  3. SPIRIVA [Concomitant]
     Dosage: UNK
  4. PREMPRO [Concomitant]
     Dosage: UNK
  5. ANTIMIGRAINE PREPARATIONS [Concomitant]
  6. ALL OTHER THERAPEUTIC PRODUCTS [Concomitant]
     Indication: HORMONE THERAPY

REACTIONS (5)
  - ANXIETY [None]
  - DYSPNOEA [None]
  - LUNG DISORDER [None]
  - PANIC ATTACK [None]
  - PHARYNGEAL OEDEMA [None]
